FAERS Safety Report 7437762-5 (Version None)
Quarter: 2011Q2

REPORT INFORMATION
  Report Type: 
  Country: None (occurrence: None)
  Receive Date: 20110426
  Receipt Date: 20110419
  Transmission Date: 20111010
  Serious: Yes (Other)
  Sender: FDA-Public Use
  Company Number: BR-PFIZER INC-2011085452

PATIENT
  Sex: Male

DRUGS (2)
  1. GEODON [Suspect]
     Route: 030
  2. GEODON [Suspect]
     Route: 048

REACTIONS (1)
  - PARANOIA [None]
